FAERS Safety Report 5096923-3 (Version None)
Quarter: 2006Q3

REPORT INFORMATION
  Report Type: 
  Country: None (occurrence: None)
  Receive Date: 20060831
  Receipt Date: 20060822
  Transmission Date: 20061208
  Serious: Yes (Other)
  Sender: FDA-Public Use
  Company Number: 235467K06USA

PATIENT
  Age: 52 Year
  Sex: Female
  Weight: 119.296 kg

DRUGS (11)
  1. REBIF [Suspect]
     Indication: MULTIPLE SCLEROSIS
     Dosage: 44 MCG, 3 IN 1 WEEKS
     Dates: start: 20040715
  2. LASIX (FUROSEMIDE/00032601/) [Concomitant]
  3. NEXIUM [Concomitant]
  4. DIOVAN [Concomitant]
  5. REMERON [Concomitant]
  6. XANAX [Concomitant]
  7. NEURONTIN [Concomitant]
  8. LORTAB [Concomitant]
  9. RESTORIL [Concomitant]
  10. ZYRTEC [Concomitant]
  11. ZANAFLEX [Concomitant]

REACTIONS (3)
  - COLITIS ULCERATIVE [None]
  - DIABETES MELLITUS [None]
  - WEIGHT DECREASED [None]
